FAERS Safety Report 5715042-3 (Version None)
Quarter: 2008Q2

REPORT INFORMATION
  Report Type: 
  Country: None (occurrence: None)
  Receive Date: 20080423
  Receipt Date: 20080415
  Transmission Date: 20081010
  Serious: Yes (Hospitalization)
  Sender: FDA-Public Use
  Company Number: BR-PFIZER INC-2007054384

PATIENT
  Sex: Female
  Weight: 47 kg

DRUGS (4)
  1. DEPO-PROVERA SUSPENSION/INJ [Suspect]
     Indication: CONTRACEPTION
     Route: 030
     Dates: start: 20061001, end: 20061001
  2. DEPO-PROVERA SUSPENSION/INJ [Suspect]
     Route: 030
     Dates: start: 20061231, end: 20061231
  3. DEPO-PROVERA SUSPENSION/INJ [Suspect]
     Route: 030
     Dates: start: 20070330, end: 20070330
  4. SYNTHROID [Concomitant]
     Indication: THYROID DISORDER
     Dosage: TEXT:TAKING 110MG

REACTIONS (3)
  - AMENORRHOEA [None]
  - METRORRHAGIA [None]
  - THYROID CANCER [None]
